FAERS Safety Report 8822194 (Version 1)
Quarter: 2012Q4

REPORT INFORMATION
  Report Type: 
  Country: US (occurrence: US)
  Receive Date: 20121003
  Receipt Date: 20121003
  Transmission Date: 20130627
  Serious: No
  Sender: FDA-Public Use
  Company Number: US-PFIZER INC-2012243168

PATIENT
  Age: 78 Year
  Sex: Male
  Weight: 138 kg

DRUGS (2)
  1. LYRICA [Suspect]
     Indication: DIABETIC NEUROPATHY
     Dosage: 100 mg, 3x/day
     Route: 048
     Dates: start: 2011
  2. LYRICA [Suspect]
     Indication: FIBROMYALGIA

REACTIONS (1)
  - Weight increased [Unknown]
